FAERS Safety Report 24296445 (Version 1)
Quarter: 2024Q3

REPORT INFORMATION
  Report Type: Report from Study
  Country: US (occurrence: US)
  Receive Date: 20240909
  Receipt Date: 20240909
  Transmission Date: 20241016
  Serious: Yes (Hospitalization)
  Sender: JOHNSON AND JOHNSON
  Company Number: US-JNJFOC-20240853341

PATIENT
  Age: 52 Year
  Sex: Female

DRUGS (3)
  1. EPOPROSTENOL SODIUM [Suspect]
     Active Substance: EPOPROSTENOL SODIUM
     Indication: Pulmonary arterial hypertension
     Route: 042
     Dates: start: 202310
  2. SOTATERCEPT [Concomitant]
     Active Substance: SOTATERCEPT
  3. OPSUMIT [Concomitant]
     Active Substance: MACITENTAN

REACTIONS (6)
  - Abscess limb [Unknown]
  - Device occlusion [Unknown]
  - Dyspnoea [Unknown]
  - Drug delivery system malfunction [Unknown]
  - Product administration interrupted [Unknown]
  - Underdose [Unknown]

NARRATIVE: CASE EVENT DATE: 20240815
